FAERS Safety Report 20050215 (Version 2)
Quarter: 2022Q4

REPORT INFORMATION
  Report Type: Spontaneous
  Country: US (occurrence: US)
  Receive Date: 20211109
  Receipt Date: 20221006
  Transmission Date: 20230112
  Serious: Yes (Other)
  Sender: FDA-Public Use
  Company Number: US-MYLANLABS-2021M1080769

PATIENT
  Age: 80 Year
  Sex: Female

DRUGS (15)
  1. VALSARTAN [Suspect]
     Active Substance: VALSARTAN
     Indication: Hypertension
     Dosage: 160 MILLIGRAM, QD (ONE PER DAY)
     Route: 065
     Dates: start: 20150822, end: 20151023
  2. VALSARTAN [Suspect]
     Active Substance: VALSARTAN
     Indication: Hypertension
     Dosage: 160 MILLIGRAM, QD (ONE PER DAY)
     Route: 065
     Dates: start: 20151022, end: 20151121
  3. VALSARTAN [Suspect]
     Active Substance: VALSARTAN
     Indication: Hypertension
     Dosage: 160 MILLIGRAM, QD (ONE PER DAY)
     Route: 065
     Dates: start: 20151123, end: 20151223
  4. VALSARTAN [Suspect]
     Active Substance: VALSARTAN
     Indication: Hypertension
     Dosage: 160 MILLIGRAM, QD (ONE PER DAY)
     Route: 065
     Dates: start: 20151219, end: 20160418
  5. VALSARTAN [Suspect]
     Active Substance: VALSARTAN
     Indication: Hypertension
     Dosage: 160 MILLIGRAM, QD
     Route: 065
     Dates: start: 20160419, end: 20160519
  6. VALSARTAN [Suspect]
     Active Substance: VALSARTAN
     Dosage: 160 MILLIGRAM, QD
     Route: 065
     Dates: start: 20160718, end: 20160817
  7. VALSARTAN [Suspect]
     Active Substance: VALSARTAN
     Indication: Hypertension
     Dosage: 160 MILLIGRAM, QD (ONE PER DAY)
     Route: 065
     Dates: start: 20160519, end: 20160719
  8. VALSARTAN [Suspect]
     Active Substance: VALSARTAN
     Indication: Hypertension
     Dosage: 160 MILLIGRAM, QD (ONE PER DAY)
     Route: 065
     Dates: start: 20160817, end: 20180721
  9. AMLODIPINE\VALSARTAN [Suspect]
     Active Substance: AMLODIPINE\VALSARTAN
     Indication: Hypertension
     Dosage: 25 MILLIGRAM
     Route: 065
     Dates: start: 20180719, end: 20180828
  10. AMLODIPINE\VALSARTAN [Suspect]
     Active Substance: AMLODIPINE\VALSARTAN
     Indication: Hypertension
     Dosage: 50 MILLIGRAM
     Route: 065
     Dates: start: 20180820, end: 20180919
  11. DIOVAN [Suspect]
     Active Substance: VALSARTAN
     Indication: Hypertension
     Dosage: 1 DOSAGE FORM, QD (1 PILL PER DAY)
     Route: 065
     Dates: start: 2002, end: 201508
  12. ANACIN NOS [Concomitant]
     Active Substance: ACETAMINOPHEN OR ACETAMINOPHEN\ASPIRIN\CAFFEINE OR ASPIRIN\CAFFEINE
     Indication: Headache
     Dosage: 1 DOSAGE FORM, PRN (OVER THE COUNTER MEDICINE- NOT PRESCRIBED, 1 TAB WHEN NEEDED)
     Route: 065
     Dates: start: 1960
  13. MINERALS\VITAMINS [Concomitant]
     Active Substance: MINERALS\VITAMINS
     Indication: Prophylaxis
     Dosage: 1 DOSAGE FORM, QD (OVER THE COUNTER MEDICINE- NOT PRESCRIBED, 1 TAB PER DAY)
     Route: 065
     Dates: start: 2000
  14. CALCIUM CITRATE + D3 [Concomitant]
     Indication: Prophylaxis
     Dosage: 1 DOSAGE FORM, QW (OVER THE COUNTER MEDICINE- NOT PRESCRIBED, 1 TAB WEEKLY)
     Route: 065
     Dates: start: 2018
  15. PRILOSEC [Concomitant]
     Active Substance: OMEPRAZOLE MAGNESIUM
     Indication: Abdominal pain upper
     Dosage: 1 DOSAGE FORM, QD (1 TAB PER DAY)
     Route: 065
     Dates: start: 201810, end: 201902

REACTIONS (1)
  - Adenocarcinoma of colon [Unknown]

NARRATIVE: CASE EVENT DATE: 20190425
